FAERS Safety Report 24524819 (Version 1)
Quarter: 2024Q4

REPORT INFORMATION
  Report Type: Spontaneous
  Country: US (occurrence: US)
  Receive Date: 20241019
  Receipt Date: 20241019
  Transmission Date: 20250115
  Serious: Yes (Hospitalization, Other)
  Sender: AUROBINDO
  Company Number: US-MLMSERVICE-20240927-PI204777-00270-1

PATIENT
  Age: 66 Year
  Sex: Female

DRUGS (5)
  1. METHYLPREDNISOLONE [Suspect]
     Active Substance: METHYLPREDNISOLONE
     Indication: Pneumocystis jirovecii pneumonia
     Dosage: 80 MILLIGRAM
     Route: 065
  2. METHYLPREDNISOLONE [Suspect]
     Active Substance: METHYLPREDNISOLONE
     Dosage: 500 MILLIGRAM (FOR 3 DAYS WITHOUT A NOTABLE IMPROVEMENT)
     Route: 065
  3. FULVESTRANT [Concomitant]
     Active Substance: FULVESTRANT
     Indication: Breast cancer recurrent
     Dosage: UNK
     Route: 065
  4. OXYGEN [Concomitant]
     Active Substance: OXYGEN
     Indication: Pneumocystis jirovecii pneumonia
     Dosage: 50 LITER, 1 MIN (HIGH FLOW NASAL CANNULA AT 70% FIO2 AND 50 LITERS/MIN TO MAINTAIN OXYGEN SATURATION
     Route: 045
  5. RIBOCICLIB [Concomitant]
     Active Substance: RIBOCICLIB
     Indication: Breast cancer recurrent
     Dosage: UNK
     Route: 065

REACTIONS (2)
  - Myopathy [Unknown]
  - Drug ineffective [Unknown]
